FAERS Safety Report 18703300 (Version 2)
Quarter: 2021Q1

REPORT INFORMATION
  Report Type: Report from Study
  Country: IT (occurrence: IT)
  Receive Date: 20210105
  Receipt Date: 20210106
  Transmission Date: 20210419
  Serious: Yes (Other)
  Sender: FDA-Public Use
  Company Number: IT-TEVA-2020-IT-1864442

PATIENT
  Age: 85 Year
  Sex: Male

DRUGS (6)
  1. BLOPRESID 16 MG/12,5 MG COMPRESSE [Interacting]
     Active Substance: CANDESARTAN CILEXETIL\HYDROCHLOROTHIAZIDE
     Indication: HYPERTENSION
     Dosage: UNIT DOSE : 1 DOSAGE FORMS
     Route: 048
  2. EBIXA 20 MG FILM?COATED TABLETS [Concomitant]
     Indication: SENILE DEMENTIA
     Dosage: UNIT DOSE : 1 DOSAGE FORMS
     Route: 048
  3. LIXIANA 60 MG FILM?COATED TABLETS [Concomitant]
     Active Substance: EDOXABAN TOSYLATE
     Indication: ATRIAL FIBRILLATION
     Dosage: UNIT DOSE : 1 DOSAGE FORMS
     Route: 048
  4. AMLODIPINE [Suspect]
     Active Substance: AMLODIPINE BESYLATE
     Indication: HYPERTENSION
     Dosage: UNIT DOSE : 5 MG
     Route: 048
  5. SILODOSIN. [Interacting]
     Active Substance: SILODOSIN
     Indication: BENIGN PROSTATIC HYPERPLASIA
     Dosage: UNIT DOSE : 4 MG
     Route: 048
     Dates: start: 20201029, end: 20201121
  6. ANTRA 20 MG CAPSULE RIGIDE GASTRORESISTENTI [Concomitant]
     Indication: PROPHYLAXIS
     Dosage: UNIT DOSE : 1 DOSAGE FORMS
     Route: 048

REACTIONS (3)
  - Fall [Recovering/Resolving]
  - Drug interaction [Recovering/Resolving]
  - Orthostatic hypotension [Recovering/Resolving]

NARRATIVE: CASE EVENT DATE: 20201102
